FAERS Safety Report 10236182 (Version 1)
Quarter: 2014Q2

REPORT INFORMATION
  Report Type: Spontaneous
  Country: AU (occurrence: AU)
  Receive Date: 20140613
  Receipt Date: 20140613
  Transmission Date: 20141212
  Serious: Yes (Other)
  Sender: FDA-Public Use
  Company Number: AU-NAPPMUNDI-GBR-2014-0018664

PATIENT
  Age: 95 Year
  Sex: Female

DRUGS (1)
  1. NORSPAN 5 MG [Suspect]
     Indication: PRODUCT USED FOR UNKNOWN INDICATION
     Dosage: 5 MG/HR, Q1H
     Route: 062

REACTIONS (1)
  - Delirium [Not Recovered/Not Resolved]
